FAERS Safety Report 24175046 (Version 3)
Quarter: 2024Q4

REPORT INFORMATION
  Report Type: Spontaneous
  Country: PY (occurrence: PY)
  Receive Date: 20240805
  Receipt Date: 20241009
  Transmission Date: 20250115
  Serious: Yes (Hospitalization)
  Sender: ABBVIE
  Company Number: PY-ABBVIE-5864295

PATIENT
  Age: 29 Year
  Sex: Female

DRUGS (2)
  1. RINVOQ [Suspect]
     Active Substance: UPADACITINIB
     Indication: Product used for unknown indication
     Dosage: 30 MILLIGRAM
     Route: 048
  2. RINVOQ [Suspect]
     Active Substance: UPADACITINIB
     Indication: Product used for unknown indication
     Dosage: 30 MILLIGRAM
     Route: 048

REACTIONS (5)
  - Synovial cyst [Unknown]
  - Pyrexia [Unknown]
  - Herpes virus infection [Recovered/Resolved]
  - Eczema herpeticum [Recovered/Resolved]
  - Hypertransaminasaemia [Unknown]
